FAERS Safety Report 5578154-3 (Version None)
Quarter: 2007Q4

REPORT INFORMATION
  Report Type: 
  Country: None (occurrence: None)
  Receive Date: 20071231
  Receipt Date: 20071220
  Transmission Date: 20080405
  Serious: Yes (Other)
  Sender: FDA-Public Use
  Company Number: CH-PFIZER INC-2007099620

PATIENT
  Age: 70 Year
  Sex: Male
  Weight: 73 kg

DRUGS (7)
  1. SORTIS [Suspect]
     Indication: HYPERCHOLESTEROLAEMIA
     Route: 048
  2. SORTIS [Suspect]
     Indication: PERIPHERAL ARTERIAL OCCLUSIVE DISEASE
  3. EZETROL [Suspect]
     Indication: HYPERCHOLESTEROLAEMIA
     Route: 048
  4. EZETROL [Suspect]
     Indication: PERIPHERAL ARTERIAL OCCLUSIVE DISEASE
  5. MICARDIS [Concomitant]
     Dosage: DAILY DOSE:80MG-FREQ:DAILY
     Route: 048
  6. LISIPRIL [Concomitant]
     Dosage: DAILY DOSE:5MG-FREQ:DAILY
     Route: 048
     Dates: start: 20050101
  7. NORVASC [Concomitant]
     Dosage: DAILY DOSE:5MG-FREQ:DAILY
     Route: 048
     Dates: start: 20050101

REACTIONS (4)
  - FORMICATION [None]
  - MUSCLE ATROPHY [None]
  - MUSCLE SPASMS [None]
  - NEUROPATHY PERIPHERAL [None]
